FAERS Safety Report 23153777 (Version 1)
Quarter: 2023Q4

REPORT INFORMATION
  Report Type: Spontaneous
  Country: IT (occurrence: IT)
  Receive Date: 20231107
  Receipt Date: 20231107
  Transmission Date: 20240110
  Serious: Yes (Hospitalization, Other)
  Sender: FDA-Public Use
  Company Number: IT-MINISAL02-950273

PATIENT
  Age: 17 Year
  Sex: Female

DRUGS (1)
  1. ZOLPIDEM TARTRATE [Suspect]
     Active Substance: ZOLPIDEM TARTRATE
     Dosage: 6 DF, 1X
     Route: 048

REACTIONS (3)
  - Altered state of consciousness [Unknown]
  - Slow speech [Unknown]
  - Drug abuse [Unknown]

NARRATIVE: CASE EVENT DATE: 20231009
